FAERS Safety Report 23473423 (Version 1)
Quarter: 2024Q1

REPORT INFORMATION
  Report Type: Spontaneous
  Country: US (occurrence: US)
  Receive Date: 20240203
  Receipt Date: 20240203
  Transmission Date: 20240409
  Serious: Yes (Life-Threatening)
  Sender: FDA-Public Use
  Company Number: US-TEVA-VS-3151838

PATIENT
  Age: 84 Year
  Sex: Male

DRUGS (2)
  1. CLONIDINE HYDROCHLORIDE [Suspect]
     Active Substance: CLONIDINE HYDROCHLORIDE
     Indication: Hypertension
     Route: 062
  2. CLONIDINE HYDROCHLORIDE [Concomitant]
     Active Substance: CLONIDINE HYDROCHLORIDE

REACTIONS (4)
  - Blood pressure increased [Unknown]
  - Chest discomfort [Recovered/Resolved]
  - Chest pain [Unknown]
  - Therapeutic response shortened [Unknown]
